FAERS Safety Report 9126290 (Version 1)
Quarter: 2013Q1

REPORT INFORMATION
  Report Type: Spontaneous
  Country: PE (occurrence: PE)
  Receive Date: 20130117
  Receipt Date: 20130117
  Transmission Date: 20140127
  Serious: Yes (Death)
  Sender: FDA-Public Use
  Company Number: PE-GLAXOSMITHKLINE-A1008737A

PATIENT
  Sex: Male

DRUGS (1)
  1. SERETIDE [Suspect]
     Indication: BRONCHIECTASIS
     Dosage: 1PUFF PER DAY
     Route: 055
     Dates: start: 20100920

REACTIONS (2)
  - Cardiac arrest [Fatal]
  - Off label use [Unknown]
